FAERS Safety Report 10945444 (Version 1)
Quarter: 2015Q1

REPORT INFORMATION
  Report Type: Spontaneous
  Country: US (occurrence: None)
  Receive Date: 20150212
  Receipt Date: 20150212
  Transmission Date: 20150721
  Serious: Yes (Other)
  Sender: FDA-Public Use
  Company Number: 2014VID00020

PATIENT
  Age: 49 Year
  Sex: Female

DRUGS (3)
  1. ACTIMMUNE [Suspect]
     Active Substance: INTERFERON GAMMA-1B
     Indication: CHRONIC GRANULOMATOUS DISEASE
     Route: 058
  2. UNSPECIFIED EPILEPSY MEDICATIONS [Concomitant]
  3. CLINDAMYCIN [Concomitant]
     Active Substance: CLINDAMYCIN\CLINDAMYCIN PHOSPHATE

REACTIONS (5)
  - Oral herpes [None]
  - Seizure [None]
  - Back pain [None]
  - Foot fracture [None]
  - Neck pain [None]

NARRATIVE: CASE EVENT DATE: 201406
